FAERS Safety Report 19114130 (Version 1)
Quarter: 2021Q2

REPORT INFORMATION
  Report Type: Spontaneous
  Country: CA (occurrence: CA)
  Receive Date: 20210409
  Receipt Date: 20210409
  Transmission Date: 20210717
  Serious: Yes (Other)
  Sender: FDA-Public Use
  Company Number: None

PATIENT
  Age: 25 Year
  Sex: Female
  Weight: 36 kg

DRUGS (1)
  1. HAWAIIAN TROPIC SHEER TOUCH ULTRA RADIANCE SUNSCREEN BROAD SPECTRUM SPF 30 [Suspect]
     Active Substance: AVOBENZONE\HOMOSALATE\OCTOCRYLENE
     Indication: PROPHYLAXIS AGAINST SOLAR RADIATION
     Dosage: ?          OTHER STRENGTH:SPF;QUANTITY:1 BOTTLE;?
     Route: 061
     Dates: start: 20210408, end: 20210408

REACTIONS (3)
  - Pruritus [None]
  - Dermatitis allergic [None]
  - Rash [None]

NARRATIVE: CASE EVENT DATE: 20210409
